FAERS Safety Report 9201161 (Version 1)
Quarter: 2013Q1

REPORT INFORMATION
  Report Type: Spontaneous
  Country: US (occurrence: None)
  Receive Date: 20130327
  Receipt Date: 20130327
  Transmission Date: 20140127
  Serious: Yes (Hospitalization, Other)
  Sender: FDA-Public Use
  Company Number: AUR-APL-2013-02568

PATIENT
  Age: 54 Year
  Sex: Female

DRUGS (6)
  1. VENLAFAXINE (VENLAFAXINE) [Suspect]
     Indication: DEPRESSION
     Route: 048
  2. EFFEXOR XR (VENLAFAXINE HYDROCHLORIDE) (75 MILLIGRAM, CAPSULE) (VENLAFAXINE HYDROCHLORIDE) [Suspect]
     Indication: DEPRESSION
     Dosage: 225 MG (150 MG + 75 MG) DAILY, ORAL
  3. ZOLOFT (SERTRALINE) [Suspect]
     Indication: DEPRESSION
  4. PAXIL [Suspect]
     Indication: DEPRESSION
  5. CYMBALTA (DULOXETINE HYDROCHLORIDE) [Suspect]
     Indication: DEPRESSION
  6. DIAZEPAM (DIAZEPAM) [Concomitant]

REACTIONS (6)
  - Ulcer haemorrhage [None]
  - Vomiting [None]
  - Full blood count decreased [None]
  - Blood potassium decreased [None]
  - Drug ineffective [None]
  - Product solubility abnormal [None]
